FAERS Safety Report 13909104 (Version 1)
Quarter: 2017Q3

REPORT INFORMATION
  Report Type: Report from Study
  Country: JP (occurrence: JP)
  Receive Date: 20170828
  Receipt Date: 20170828
  Transmission Date: 20171127
  Serious: Yes (Hospitalization, Other)
  Sender: FDA-Public Use
  Company Number: JP-ROCHE-1557035

PATIENT
  Age: 63 Year
  Sex: Male

DRUGS (10)
  1. ELPLAT [Suspect]
     Active Substance: OXALIPLATIN
     Indication: COLORECTAL CANCER METASTATIC
     Dosage: DOSAGE IS UNCERTAIN?MOST RECENT DOSE ON 18/FEB/2015
     Route: 041
     Dates: start: 20141105
  2. BEVACIZUMAB. [Suspect]
     Active Substance: BEVACIZUMAB
     Indication: COLORECTAL CANCER METASTATIC
     Dosage: DOSAGE IS UNCERTAIN.
     Route: 041
     Dates: start: 20141105, end: 20150218
  3. 5-FU [Suspect]
     Active Substance: FLUOROURACIL
     Dosage: DOSAGE UNCERTAIN
     Route: 041
     Dates: start: 20141105, end: 20150218
  4. CALCIUM LEVOFOLINATE [Suspect]
     Active Substance: LEVOLEUCOVORIN CALCIUM
     Indication: COLORECTAL CANCER METASTATIC
     Dosage: DOSAGE UNCERTAIN
     Route: 041
     Dates: start: 20141105, end: 20150218
  5. 5-FU [Suspect]
     Active Substance: FLUOROURACIL
     Dosage: DOSAGE UNCERTAIN
     Route: 041
     Dates: start: 20150318, end: 20151014
  6. CALCIUM LEVOFOLINATE [Suspect]
     Active Substance: LEVOLEUCOVORIN CALCIUM
     Dosage: DOSAGE UNCERTAIN
     Route: 041
     Dates: start: 20150318, end: 20151014
  7. BEVACIZUMAB. [Suspect]
     Active Substance: BEVACIZUMAB
     Dosage: DOSAGE IS UNCERTAIN.
     Route: 041
     Dates: start: 20150318, end: 20151014
  8. 5-FU [Suspect]
     Active Substance: FLUOROURACIL
     Indication: COLORECTAL CANCER METASTATIC
     Route: 040
     Dates: start: 20141105, end: 20150218
  9. IRINOTECAN HYDROCHLORIDE TRIHYDRATE [Suspect]
     Active Substance: IRINOTECAN HYDROCHLORIDE
     Indication: COLORECTAL CANCER METASTATIC
     Dosage: DOSAGE UNCERTAIN.?MOST RECENT DOSE ON 18/FEB/2015
     Route: 041
     Dates: start: 20141105
  10. 5-FU [Suspect]
     Active Substance: FLUOROURACIL
     Route: 040
     Dates: start: 20150318, end: 20151014

REACTIONS (8)
  - Dehydration [Recovered/Resolved]
  - Neutrophil count decreased [Not Recovered/Not Resolved]
  - Anaemia [Recovering/Resolving]
  - Anaemia [Not Recovered/Not Resolved]
  - Proteinuria [Not Recovered/Not Resolved]
  - Hypertension [Not Recovered/Not Resolved]
  - Malaise [Unknown]
  - Dehydration [Recovering/Resolving]

NARRATIVE: CASE EVENT DATE: 2015
